FAERS Safety Report 14312084 (Version 3)
Quarter: 2018Q1

REPORT INFORMATION
  Report Type: Spontaneous
  Country: GB (occurrence: GB)
  Receive Date: 20171221
  Receipt Date: 20180123
  Transmission Date: 20180509
  Serious: Yes (Other)
  Sender: FDA-Public Use
  Company Number: GB-DRREDDYS-USA/UKI/17/0095071

PATIENT
  Age: 72 Year
  Sex: Female

DRUGS (10)
  1. OLANZAPINE. [Suspect]
     Active Substance: OLANZAPINE
     Route: 048
  2. VENLAFAXINE XL 150 MG [Suspect]
     Active Substance: VENLAFAXINE HYDROCHLORIDE
  3. ABILIFY [Suspect]
     Active Substance: ARIPIPRAZOLE
     Indication: DEPRESSION
     Route: 065
  4. OLANZAPINE. [Suspect]
     Active Substance: OLANZAPINE
     Indication: DEPRESSION
     Dosage: AT NIGHT
     Route: 048
  5. VENLAFAXINE XL 150 MG [Suspect]
     Active Substance: VENLAFAXINE HYDROCHLORIDE
  6. VENLAFAXINE XL 150 MG [Suspect]
     Active Substance: VENLAFAXINE HYDROCHLORIDE
     Indication: DEPRESSION
     Dosage: AT NIGHT
     Dates: start: 201311
  7. OLANZAPINE. [Suspect]
     Active Substance: OLANZAPINE
     Dosage: AT NIGHT
     Route: 048
  8. SERTRALINE [Suspect]
     Active Substance: SERTRALINE HYDROCHLORIDE
     Indication: DEPRESSION
  9. VENLAFAXINE XL 150 MG [Suspect]
     Active Substance: VENLAFAXINE HYDROCHLORIDE
  10. MIRTAZAPINE. [Suspect]
     Active Substance: MIRTAZAPINE
     Indication: DEPRESSION
     Route: 065

REACTIONS (12)
  - Mental impairment [Unknown]
  - Tachycardia [Unknown]
  - Dyspnoea [Recovering/Resolving]
  - Hyperdynamic left ventricle [Unknown]
  - Left ventricular hypertrophy [None]
  - Palpitations [Recovering/Resolving]
  - Bifascicular block [None]
  - Electrocardiogram QT prolonged [Recovered/Resolved]
  - Anxiety [Recovering/Resolving]
  - Bundle branch block right [Unknown]
  - Weight increased [Unknown]
  - Paranoia [None]

NARRATIVE: CASE EVENT DATE: 201412
